FAERS Safety Report 20652881 (Version 2)
Quarter: 2022Q3

REPORT INFORMATION
  Report Type: Report from Study
  Country: US (occurrence: US)
  Receive Date: 20220330
  Receipt Date: 20220808
  Transmission Date: 20221027
  Serious: Yes (Hospitalization, Other)
  Sender: FDA-Public Use
  Company Number: US-BRISTOL-MYERS SQUIBB COMPANY-2022-012370

PATIENT
  Age: 72 Year
  Sex: Male
  Weight: 200.49 kg

DRUGS (1)
  1. REVLIMID [Suspect]
     Active Substance: LENALIDOMIDE
     Indication: Plasma cell myeloma
     Route: 048
     Dates: start: 20190327

REACTIONS (5)
  - Glaucoma [Unknown]
  - Cataract [Unknown]
  - Abscess [Unknown]
  - Adverse event [Unknown]
  - Staphylococcal osteomyelitis [Unknown]

NARRATIVE: CASE EVENT DATE: 20220304
